FAERS Safety Report 13683501 (Version 1)
Quarter: 2017Q2

REPORT INFORMATION
  Report Type: Spontaneous
  Country: US (occurrence: US)
  Receive Date: 20170623
  Receipt Date: 20170623
  Transmission Date: 20170830
  Serious: Yes (Other)
  Sender: FDA-Public Use
  Company Number: US-JNJFOC-20170620074

PATIENT
  Sex: Male

DRUGS (8)
  1. FLUTICASONE PROPIONATE. [Concomitant]
     Active Substance: FLUTICASONE PROPIONATE
     Route: 045
  2. LOSARTAN POTASSIUM. [Concomitant]
     Active Substance: LOSARTAN POTASSIUM
     Route: 065
  3. XGEVA [Concomitant]
     Active Substance: DENOSUMAB
     Route: 058
  4. LUPRON [Concomitant]
     Active Substance: LEUPROLIDE ACETATE
     Route: 030
  5. ZYTIGA [Suspect]
     Active Substance: ABIRATERONE ACETATE
     Indication: PROSTATE CANCER
     Route: 048
     Dates: start: 20150123
  6. AMLODIPINE BESYLATE. [Concomitant]
     Active Substance: AMLODIPINE BESYLATE
     Route: 065
  7. OMEPRAZOLE. [Concomitant]
     Active Substance: OMEPRAZOLE
     Route: 065
  8. LACTULOSE. [Concomitant]
     Active Substance: LACTULOSE
     Route: 065

REACTIONS (3)
  - Cardiac pacemaker insertion [Unknown]
  - Fatigue [Unknown]
  - Weight increased [Unknown]
